FAERS Safety Report 8594039-2 (Version None)
Quarter: 2012Q3

REPORT INFORMATION
  Report Type: 
  Country: None (occurrence: None)
  Receive Date: 20120814
  Receipt Date: 20120808
  Transmission Date: 20120928
  Serious: Yes (Other)
  Sender: FDA-Public Use
  Company Number: US-PFIZER INC-2012151776

PATIENT
  Age: 60 Year
  Sex: Male
  Weight: 99.773 kg

DRUGS (5)
  1. CIALIS [Suspect]
     Indication: ERECTILE DYSFUNCTION
     Dosage: UNK
     Dates: end: 20120624
  2. BISMUTH SUBSALICYLATE [Suspect]
     Indication: GASTROOESOPHAGEAL REFLUX DISEASE
     Dosage: UNK
  3. BISMUTH SUBSALICYLATE [Suspect]
     Indication: GASTRITIS
  4. VIAGRA [Suspect]
     Indication: ERECTILE DYSFUNCTION
     Dosage: 50 MG, AS NEEDED
     Route: 048
     Dates: end: 20120624
  5. ALCOHOL [Suspect]
     Dosage: UNK

REACTIONS (8)
  - PRODUCT COUNTERFEIT [None]
  - GASTRITIS [None]
  - MALAISE [None]
  - GASTROOESOPHAGEAL REFLUX DISEASE [None]
  - VOMITING [None]
  - GASTROINTESTINAL HAEMORRHAGE [None]
  - BURNING SENSATION [None]
  - METAL POISONING [None]
